FAERS Safety Report 5732618-8 (Version None)
Quarter: 2008Q2

REPORT INFORMATION
  Report Type: 
  Country: None (occurrence: None)
  Receive Date: 20080507
  Receipt Date: 20080425
  Transmission Date: 20081010
  Serious: No
  Sender: FDA-Public Use
  Company Number: TPA2008A00372

PATIENT
  Age: 65 Year
  Sex: Male
  Weight: 99.7913 kg

DRUGS (8)
  1. ACTOS [Suspect]
     Indication: TYPE 2 DIABETES MELLITUS
     Dosage: 1 IN 1 D, PER ORAL
     Route: 048
     Dates: end: 20060501
  2. ACTOPLUS MET [Suspect]
     Indication: TYPE 2 DIABETES MELLITUS
     Dosage: 15 MG/850 MG, 1 IN 1 D, PER ORAL; 15 MG/850 MG, 2 IN 1 D, PER ORAL
     Route: 048
     Dates: start: 20060501, end: 20080101
  3. ACTOPLUS MET [Suspect]
     Indication: TYPE 2 DIABETES MELLITUS
     Dosage: 15 MG/850 MG, 1 IN 1 D, PER ORAL; 15 MG/850 MG, 2 IN 1 D, PER ORAL
     Route: 048
     Dates: start: 20080101
  4. TAZTIA XT       (ANTIHYPERTENSIVES) [Concomitant]
  5. TAZTIA    (ANTIHYPERTENSIVES) [Concomitant]
  6. AVALIDE [Concomitant]
  7. METFORMIN XR           (ANTI-DIABETICS) [Concomitant]
  8. PRAVACHOL [Concomitant]

REACTIONS (6)
  - ARTHRALGIA [None]
  - BLOOD GLUCOSE INCREASED [None]
  - GLYCOSYLATED HAEMOGLOBIN INCREASED [None]
  - MALIGNANT MELANOMA [None]
  - MENISCUS LESION [None]
  - PRECANCEROUS SKIN LESION [None]
